FAERS Safety Report 4717617-7 (Version None)
Quarter: 2005Q3

REPORT INFORMATION
  Report Type: 
  Country: None (occurrence: None)
  Receive Date: 20050712
  Receipt Date: 20050415
  Transmission Date: 20060218
  Serious: No
  Sender: FDA-Public Use
  Company Number: 2004S1000281

PATIENT
  Age: 65 Year
  Sex: Male

DRUGS (34)
  1. CUBICIN [Suspect]
     Indication: ENTEROCOCCAL BACTERAEMIA
     Dosage: 350 MG; Q24H; IV
     Route: 042
     Dates: start: 20041129, end: 20050224
  2. CUBICIN [Suspect]
     Indication: PATHOGEN RESISTANCE
     Dosage: 350 MG; Q24H; IV
     Route: 042
     Dates: start: 20041129, end: 20050224
  3. HYDROCORTISONE [Concomitant]
  4. TACROLIMUS [Concomitant]
  5. METHYLPREDNISOLONE [Concomitant]
  6. LANSOPRAZOLE [Concomitant]
  7. SUCRALFATE [Concomitant]
  8. PANTOPRAZOLE [Concomitant]
  9. FAMOTIDINE [Concomitant]
  10. METOCLOPRAMIDE [Concomitant]
  11. TPN [Concomitant]
  12. MAGNESIUM SULFATE [Concomitant]
  13. POTASSIUM CHLORIDE [Concomitant]
  14. SODIUM BICARBONATE [Concomitant]
  15. REGULAR INSULIN [Concomitant]
  16. FAT EMULSIONS [Concomitant]
  17. FUROSEMIDE [Concomitant]
  18. LORAZEPAM [Concomitant]
  19. ASPIRIN [Concomitant]
  20. MEROPENEM [Concomitant]
  21. AMPHOTERICIN B FOR INJECTION [Concomitant]
  22. AMIKACIN [Concomitant]
  23. CEFEPIME [Concomitant]
  24. VANCOMYCIN [Concomitant]
  25. LINEZOLID [Concomitant]
  26. GANCICLOVIR [Concomitant]
  27. ACETAZOLAMIDE [Concomitant]
  28. DOPAMINE HCL [Concomitant]
  29. VASOPRESSIN [Concomitant]
  30. AZTREONAM [Concomitant]
  31. METRONIDAZOLE [Concomitant]
  32. COLISTIN SULFATE [Concomitant]
  33. TOBRAMYCIN [Concomitant]
  34. THYMOGLOBULIN [Concomitant]

REACTIONS (1)
  - INTERNATIONAL NORMALISED RATIO INCREASED [None]
